FAERS Safety Report 10652833 (Version 1)
Quarter: 2014Q4

REPORT INFORMATION
  Report Type: Report from Study
  Country: BR (occurrence: BR)
  Receive Date: 20141215
  Receipt Date: 20141215
  Transmission Date: 20150529
  Serious: Yes (Disabling, Other)
  Sender: FDA-Public Use
  Company Number: BR-ABBVIE-14K-020-1319130-00

PATIENT
  Age: 48 Year
  Sex: Male
  Weight: 88 kg

DRUGS (1)
  1. HUMIRA [Suspect]
     Active Substance: ADALIMUMAB
     Indication: RHEUMATOID ARTHRITIS
     Route: 058
     Dates: start: 201405, end: 201411

REACTIONS (14)
  - Brain neoplasm benign [Recovered/Resolved]
  - Gait disturbance [Not Recovered/Not Resolved]
  - Muscular weakness [Recovered/Resolved]
  - Deafness unilateral [Recovered/Resolved]
  - Drug ineffective [Unknown]
  - Neck pain [Unknown]
  - Anxiety [Recovering/Resolving]
  - Aphasia [Not Recovered/Not Resolved]
  - Exostosis [Unknown]
  - Seizure [Recovered/Resolved]
  - VIIth nerve paralysis [Not Recovered/Not Resolved]
  - Pain [Unknown]
  - Fall [Recovered/Resolved]
  - Intervertebral disc protrusion [Unknown]

NARRATIVE: CASE EVENT DATE: 2014
